FAERS Safety Report 7362521-1 (Version None)
Quarter: 2011Q1

REPORT INFORMATION
  Report Type: 
  Country: None (occurrence: None)
  Receive Date: 20110318
  Receipt Date: 20110309
  Transmission Date: 20110831
  Serious: Yes (Other)
  Sender: FDA-Public Use
  Company Number: US-ASTRAZENECA-2011SE13102

PATIENT
  Age: 50 Year
  Sex: Female

DRUGS (3)
  1. LEVAQUIN [Concomitant]
  2. ALCOHOL [Concomitant]
  3. SEROQUEL XR [Suspect]
     Indication: MAJOR DEPRESSION
     Route: 048

REACTIONS (1)
  - LOSS OF CONSCIOUSNESS [None]
